FAERS Safety Report 7795980-0 (Version None)
Quarter: 2011Q4

REPORT INFORMATION
  Report Type: 
  Country: None (occurrence: None)
  Receive Date: 20111004
  Receipt Date: 20110926
  Transmission Date: 20120403
  Serious: Yes (Other)
  Sender: FDA-Public Use
  Company Number: BR-ASTRAZENECA-2011SE58127

PATIENT
  Age: 81 Year
  Sex: Male
  Weight: 95 kg

DRUGS (12)
  1. OMEPRAZOLE [Suspect]
     Indication: PROPHYLAXIS AGAINST GASTROINTESTINAL ULCER
     Dosage: DAILY
     Route: 048
     Dates: start: 20010101
  2. SIMVASTATIN [Concomitant]
     Route: 048
  3. ATACAND HCT [Suspect]
     Indication: HYPERTENSION
     Dosage: 16+12.5 MG DAILY
     Route: 048
     Dates: start: 20110901
  4. ATACAND HCT [Suspect]
     Indication: HYPERTENSION
     Dosage: 16+12.5 MG DAILY
     Route: 048
     Dates: start: 20060101, end: 20110901
  5. SOMALGIN CARDIO [Concomitant]
     Route: 048
  6. PRIMIDE [Concomitant]
     Route: 048
  7. DUOMO [Concomitant]
     Route: 048
  8. CITALOPRAM HYDROBROMIDE [Concomitant]
     Route: 048
  9. ATACAND [Suspect]
     Indication: HYPERTENSION
     Route: 048
     Dates: start: 20010101, end: 20060101
  10. BISOPROLOL FUMARATE [Concomitant]
     Route: 048
  11. LASIX [Concomitant]
     Route: 048
  12. DEPAKENE [Concomitant]
     Route: 048

REACTIONS (4)
  - BLOOD PRESSURE INCREASED [None]
  - OEDEMA PERIPHERAL [None]
  - CARDIAC FAILURE [None]
  - DRUG INEFFECTIVE [None]
